FAERS Safety Report 19373039 (Version 1)
Quarter: 2021Q2

REPORT INFORMATION
  Report Type: Other
  Country: CA (occurrence: CA)
  Receive Date: 20210604
  Receipt Date: 20210604
  Transmission Date: 20210717
  Serious: Yes (Other)
  Sender: FDA-Public Use
  Company Number: CA-APOTEX-2021AP013104

PATIENT
  Age: 44 Year
  Sex: Male
  Weight: 60 kg

DRUGS (7)
  1. IMATINIB. [Concomitant]
     Active Substance: IMATINIB MESYLATE
     Indication: CHRONIC MYELOID LEUKAEMIA
     Dosage: 50 MILLIGRAM
     Route: 065
  2. IMATINIB. [Concomitant]
     Active Substance: IMATINIB MESYLATE
     Dosage: 100 MILLIGRAM, BID
     Route: 065
  3. MOXIFLOXACIN. [Suspect]
     Active Substance: MOXIFLOXACIN
     Indication: PRODUCT USED FOR UNKNOWN INDICATION
     Dosage: UNK
     Route: 065
  4. DASATINIB. [Concomitant]
     Active Substance: DASATINIB
     Indication: CHRONIC MYELOID LEUKAEMIA
     Dosage: 25 MILLIGRAM, QD
     Route: 065
  5. CIPROFLOXACIN. [Suspect]
     Active Substance: CIPROFLOXACIN
     Indication: PROSTATITIS
     Dosage: 500 MILLIGRAM
     Route: 048
  6. DASATINIB. [Concomitant]
     Active Substance: DASATINIB
     Dosage: 20 MILLIGRAM, QD
     Route: 065
  7. DASATINIB. [Concomitant]
     Active Substance: DASATINIB
     Dosage: 50 MILLIGRAM, QD
     Route: 065

REACTIONS (17)
  - Coordination abnormal [Unknown]
  - Photosensitivity reaction [Unknown]
  - Hypoaesthesia [Unknown]
  - Cardiac disorder [Unknown]
  - Proctalgia [Unknown]
  - Insomnia [Unknown]
  - Back pain [Unknown]
  - Rash [Unknown]
  - Tendon pain [Unknown]
  - Paraesthesia [Unknown]
  - Ligament sprain [Unknown]
  - Temperature intolerance [Unknown]
  - Myalgia [Unknown]
  - Anxiety [Unknown]
  - Weight decreased [Unknown]
  - Restlessness [Unknown]
  - Erythema [Unknown]
